FAERS Safety Report 16151975 (Version 1)
Quarter: 2019Q2

REPORT INFORMATION
  Report Type: Report from Study
  Country: US (occurrence: US)
  Receive Date: 20190403
  Receipt Date: 20190403
  Transmission Date: 20190711
  Serious: Yes (Death)
  Sender: FDA-Public Use
  Company Number: US-PUMA BIOTECHNOLOGY, LTD.-2019US002901

PATIENT

DRUGS (1)
  1. NERLYNX [Suspect]
     Active Substance: NERATINIB
     Indication: BREAST CANCER
     Dosage: 120 MG, DAILY
     Route: 048
     Dates: start: 20180612

REACTIONS (2)
  - Death [Fatal]
  - Underdose [Unknown]

NARRATIVE: CASE EVENT DATE: 20190211
